FAERS Safety Report 8995673 (Version 1)
Quarter: 2013Q1

REPORT INFORMATION
  Report Type: Spontaneous
  Country: US (occurrence: US)
  Receive Date: 20130103
  Receipt Date: 20130103
  Transmission Date: 20140127
  Serious: No
  Sender: FDA-Public Use
  Company Number: US-ABBOTT-12P-163-0974171-00

PATIENT
  Sex: Female

DRUGS (3)
  1. SYNTHROID 88 MCG [Suspect]
     Indication: AUTOIMMUNE THYROIDITIS
  2. SYNTHROID 88 MCG [Suspect]
  3. UNKNOWN MEDICATIONS [Concomitant]
     Indication: PRODUCT USED FOR UNKNOWN INDICATION

REACTIONS (5)
  - Skin disorder [Unknown]
  - Weight increased [Unknown]
  - Fatigue [Unknown]
  - Alopecia [Unknown]
  - Autoimmune thyroiditis [Unknown]
